FAERS Safety Report 22194479 (Version 1)
Quarter: 2023Q2

REPORT INFORMATION
  Report Type: Spontaneous
  Country: GB (occurrence: GB)
  Receive Date: 20230411
  Receipt Date: 20230411
  Transmission Date: 20230722
  Serious: Yes (Hospitalization)
  Sender: FDA-Public Use
  Company Number: GB-STRIDES ARCOLAB LIMITED-2023SP004954

PATIENT
  Age: 26 Year
  Sex: Female

DRUGS (9)
  1. PENICILLIN [Suspect]
     Active Substance: PENICILLIN
     Indication: Clostridium difficile infection
     Dosage: UNK
     Route: 065
  2. METRONIDAZOLE [Suspect]
     Active Substance: METRONIDAZOLE
     Indication: Toothache
     Dosage: UNK
     Route: 065
  3. METRONIDAZOLE [Suspect]
     Active Substance: METRONIDAZOLE
     Indication: Clostridium difficile infection
     Dosage: UNK
     Route: 065
  4. AMOXICILLIN [Suspect]
     Active Substance: AMOXICILLIN
     Indication: Toothache
     Dosage: UNK
     Route: 065
  5. FLUCLOXACILLIN [Suspect]
     Active Substance: FLUCLOXACILLIN
     Indication: Clostridium difficile infection
     Dosage: UNK
     Route: 065
  6. LANSOPRAZOLE [Suspect]
     Active Substance: LANSOPRAZOLE
     Indication: Drug therapy
     Dosage: UNK
     Route: 065
  7. METHYLPREDNISOLONE [Suspect]
     Active Substance: METHYLPREDNISOLONE
     Indication: Toxic epidermal necrolysis
     Dosage: UNK
     Route: 065
  8. COCODAMOL [Concomitant]
     Active Substance: ACETAMINOPHEN\CODEINE PHOSPHATE
     Indication: Toothache
     Dosage: UNK
     Route: 065
  9. HYDROXYCHLOROQUINE [Concomitant]
     Active Substance: HYDROXYCHLOROQUINE
     Indication: Systemic lupus erythematosus
     Dosage: UNK
     Route: 065

REACTIONS (3)
  - Sepsis [Recovered/Resolved]
  - Toxic epidermal necrolysis [Recovered/Resolved]
  - Off label use [Unknown]
